FAERS Safety Report 7785115-2 (Version None)
Quarter: 2011Q3

REPORT INFORMATION
  Report Type: 
  Country: None (occurrence: None)
  Receive Date: 20110929
  Receipt Date: 20110921
  Transmission Date: 20111222
  Serious: No
  Sender: FDA-Public Use
  Company Number: US-BIOGENIDEC-2011BI035501

PATIENT
  Age: 48 Year
  Sex: Female

DRUGS (2)
  1. TYSABRI [Suspect]
     Indication: MULTIPLE SCLEROSIS
     Route: 042
     Dates: start: 20100128, end: 20110104
  2. TYSABRI [Suspect]
     Route: 042
     Dates: start: 20080327, end: 20080722

REACTIONS (3)
  - PARANASAL SINUS HYPERSECRETION [None]
  - PYREXIA [None]
  - OROPHARYNGEAL PAIN [None]
